FAERS Safety Report 8332289-0 (Version None)
Quarter: 2012Q2

REPORT INFORMATION
  Report Type: 
  Country: None (occurrence: None)
  Receive Date: 20120503
  Receipt Date: 20120425
  Transmission Date: 20120825
  Serious: No
  Sender: FDA-Public Use
  Company Number: US-BIOGENIDEC-2012BI014809

PATIENT
  Age: 29 Year
  Sex: Female

DRUGS (2)
  1. TYSABRI [Suspect]
     Route: 042
     Dates: start: 20110617
  2. TYSABRI [Suspect]
     Indication: MULTIPLE SCLEROSIS
     Route: 042
     Dates: start: 20070223, end: 20100616

REACTIONS (6)
  - HYPOAESTHESIA [None]
  - CENTRAL NERVOUS SYSTEM LESION [None]
  - EAR PAIN [None]
  - ABDOMINAL PAIN UPPER [None]
  - EAR INFECTION [None]
  - CYSTITIS [None]
